FAERS Safety Report 14741011 (Version 1)
Quarter: 2018Q2

REPORT INFORMATION
  Report Type: Report from Study
  Country: US (occurrence: US)
  Receive Date: 20180410
  Receipt Date: 20180410
  Transmission Date: 20180711
  Serious: Yes (Death)
  Sender: FDA-Public Use
  Company Number: US-EXELIXIS-CABO-18013325

PATIENT
  Sex: Female

DRUGS (15)
  1. TYLENOL [Concomitant]
     Active Substance: ACETAMINOPHEN
  2. POTASSIUM [Concomitant]
     Active Substance: POTASSIUM
  3. MS CONTIN [Concomitant]
     Active Substance: MORPHINE SULFATE
  4. MEGACE [Concomitant]
     Active Substance: MEGESTROL ACETATE
  5. BUMEX [Concomitant]
     Active Substance: BUMETANIDE
  6. ATENOLOL. [Concomitant]
     Active Substance: ATENOLOL
  7. CABOMETYX [Suspect]
     Active Substance: CABOZANTINIB S-MALATE
     Indication: PRODUCT USED FOR UNKNOWN INDICATION
  8. MIRALAX [Concomitant]
     Active Substance: POLYETHYLENE GLYCOL 3350
  9. PRAVASTATIN. [Concomitant]
     Active Substance: PRAVASTATIN
  10. LEVOTHYROXINE. [Concomitant]
     Active Substance: LEVOTHYROXINE
  11. LYRICA [Concomitant]
     Active Substance: PREGABALIN
  12. VITAMIN D [Concomitant]
     Active Substance: CHOLECALCIFEROL
  13. PRILOSEC [Concomitant]
     Active Substance: OMEPRAZOLE MAGNESIUM
  14. KEFLEX [Concomitant]
     Active Substance: CEPHALEXIN
  15. OXYCODONE [Concomitant]
     Active Substance: OXYCODONE

REACTIONS (1)
  - Death [Fatal]
